FAERS Safety Report 25955298 (Version 1)
Quarter: 2025Q4

REPORT INFORMATION
  Report Type: Report from Study
  Country: JP (occurrence: JP)
  Receive Date: 20251024
  Receipt Date: 20251024
  Transmission Date: 20260117
  Serious: Yes (Death, Hospitalization, Other)
  Sender: IPSEN BIOPHARMACEUTICALS, INC.
  Company Number: JP-SERVIER-S23007615

PATIENT
  Age: 67 Year
  Sex: Female
  Weight: 42 kg

DRUGS (51)
  1. ONIVYDE [Suspect]
     Active Substance: IRINOTECAN HYDROCHLORIDE
     Indication: Pancreatic carcinoma metastatic
     Dosage: 70 MG/M2
     Route: 042
     Dates: start: 20230202, end: 20230202
  2. ONIVYDE [Suspect]
     Active Substance: IRINOTECAN HYDROCHLORIDE
     Dosage: 70 MG/M2
     Route: 042
     Dates: start: 20230216, end: 20230216
  3. ONIVYDE [Suspect]
     Active Substance: IRINOTECAN HYDROCHLORIDE
     Dosage: 50 MG/M2
     Route: 042
     Dates: start: 20230309, end: 2023
  4. ONIVYDE [Suspect]
     Active Substance: IRINOTECAN HYDROCHLORIDE
     Dosage: 50 MG/M2
     Route: 042
     Dates: start: 20230420, end: 20230420
  5. ONIVYDE [Suspect]
     Active Substance: IRINOTECAN HYDROCHLORIDE
     Dosage: 50 MG/M2
     Route: 042
     Dates: start: 20230515, end: 20230515
  6. ONIVYDE [Suspect]
     Active Substance: IRINOTECAN HYDROCHLORIDE
     Dosage: 50 MG/M2
     Route: 042
     Dates: start: 20230605, end: 20230605
  7. ONIVYDE [Suspect]
     Active Substance: IRINOTECAN HYDROCHLORIDE
     Dosage: 50 MG/M2
     Route: 042
     Dates: start: 20230619, end: 20230619
  8. ONIVYDE [Suspect]
     Active Substance: IRINOTECAN HYDROCHLORIDE
     Dosage: 50 MG/M2
     Route: 042
     Dates: start: 20230703, end: 20230703
  9. GIMERACIL\OTERACIL\TEGAFUR [Suspect]
     Active Substance: GIMERACIL\OTERACIL POTASSIUM\TEGAFUR
     Indication: Pancreatic carcinoma metastatic
     Dosage: 50 MG, BID
     Dates: start: 20230202, end: 202302
  10. GIMERACIL\OTERACIL\TEGAFUR [Suspect]
     Active Substance: GIMERACIL\OTERACIL POTASSIUM\TEGAFUR
     Dosage: 50 MG, BID
     Dates: start: 20230216, end: 202302
  11. GIMERACIL\OTERACIL\TEGAFUR [Suspect]
     Active Substance: GIMERACIL\OTERACIL POTASSIUM\TEGAFUR
     Dosage: 40 MG, BID
     Dates: start: 20230309, end: 2023
  12. GIMERACIL\OTERACIL\TEGAFUR [Suspect]
     Active Substance: GIMERACIL\OTERACIL POTASSIUM\TEGAFUR
     Dosage: 40 MG, BID
     Dates: start: 20230420, end: 20230423
  13. GIMERACIL\OTERACIL\TEGAFUR [Suspect]
     Active Substance: GIMERACIL\OTERACIL POTASSIUM\TEGAFUR
     Dosage: 40 MG
  14. GIMERACIL\OTERACIL\TEGAFUR [Suspect]
     Active Substance: GIMERACIL\OTERACIL POTASSIUM\TEGAFUR
     Dosage: 40 MG, BID
     Dates: start: 20230515, end: 202305
  15. GIMERACIL\OTERACIL\TEGAFUR [Suspect]
     Active Substance: GIMERACIL\OTERACIL POTASSIUM\TEGAFUR
     Dosage: 40 MG, BID
     Dates: start: 20230605, end: 202306
  16. GIMERACIL\OTERACIL\TEGAFUR [Suspect]
     Active Substance: GIMERACIL\OTERACIL POTASSIUM\TEGAFUR
     Dosage: 40 MG, BID
     Dates: start: 20230619, end: 202306
  17. GIMERACIL\OTERACIL\TEGAFUR [Suspect]
     Active Substance: GIMERACIL\OTERACIL POTASSIUM\TEGAFUR
     Dosage: 40 MG, BID
     Dates: start: 20230703, end: 202307
  18. OMEGA-3-ACID ETHYL ESTER [Concomitant]
     Active Substance: OMEGA-3-ACID ETHYL ESTERS
     Indication: Dyslipidaemia
     Dosage: 2 MG, BID
  19. OMEGA-3-ACID ETHYL ESTER [Concomitant]
     Active Substance: OMEGA-3-ACID ETHYL ESTERS
     Dosage: 2 MG, BID
     Route: 048
  20. CALCIUM ASPARTATE [Concomitant]
     Active Substance: CALCIUM ASPARTATE
     Indication: Osteoporosis
     Dosage: 200 MG, BID
  21. CALCIUM ASPARTATE [Concomitant]
     Active Substance: CALCIUM ASPARTATE
     Dosage: 200 MG, BID
     Route: 048
  22. ELDECALCITOL [Concomitant]
     Active Substance: ELDECALCITOL
     Indication: Osteoporosis
     Dosage: 0.75 ?G, QD
  23. ELDECALCITOL [Concomitant]
     Active Substance: ELDECALCITOL
     Dosage: 0.75 ?G, QD
     Route: 048
  24. ZOLPIDEM TARTRATE [Concomitant]
     Active Substance: ZOLPIDEM TARTRATE
     Indication: Insomnia
     Dosage: 10 MG, QD
  25. ZOLPIDEM TARTRATE [Concomitant]
     Active Substance: ZOLPIDEM TARTRATE
     Dosage: 10 MG, QD
     Route: 048
  26. BELSOMRA [Concomitant]
     Active Substance: SUVOREXANT
     Indication: Insomnia
     Dosage: 15 MG, QD
  27. BELSOMRA [Concomitant]
     Active Substance: SUVOREXANT
     Dosage: 15 MG, QD
     Route: 048
  28. RIVOTRIL [Concomitant]
     Active Substance: CLONAZEPAM
     Indication: Insomnia
     Dosage: 1.5 MG, QD
  29. RIVOTRIL [Concomitant]
     Active Substance: CLONAZEPAM
     Dosage: 1.5 MG, QD
     Route: 048
  30. ASPIRIN [Concomitant]
     Active Substance: ASPIRIN
     Indication: Angina pectoris
     Dosage: 100 MG, QD
  31. ASPIRIN [Concomitant]
     Active Substance: ASPIRIN
     Dosage: 100 MG, QD
     Route: 048
  32. ISOSORBIDE MONONITRATE [Concomitant]
     Active Substance: ISOSORBIDE MONONITRATE
     Indication: Angina pectoris
     Dosage: 20 MG, BID
  33. ISOSORBIDE MONONITRATE [Concomitant]
     Active Substance: ISOSORBIDE MONONITRATE
     Dosage: 20 MG, BID
     Route: 048
  34. DILTIAZEM HYDROCHLORIDE [Concomitant]
     Active Substance: DILTIAZEM HYDROCHLORIDE
     Indication: Angina pectoris
     Dosage: 30 MG, TID
  35. DILTIAZEM HYDROCHLORIDE [Concomitant]
     Active Substance: DILTIAZEM HYDROCHLORIDE
     Dosage: 30 MG, TID
     Route: 048
  36. LOXOPROFEN SODIUM [Concomitant]
     Active Substance: LOXOPROFEN SODIUM
     Indication: Tumour pain
     Dosage: UNK UNK, AS REQ^D
  37. LOXOPROFEN SODIUM [Concomitant]
     Active Substance: LOXOPROFEN SODIUM
     Dosage: UNK UNK, AS REQ^D
     Route: 048
  38. TRAMADOL HYDROCHLORIDE [Concomitant]
     Active Substance: TRAMADOL HYDROCHLORIDE
     Indication: Tumour pain
     Dosage: 100 MG, QD
  39. TRAMADOL HYDROCHLORIDE [Concomitant]
     Active Substance: TRAMADOL HYDROCHLORIDE
     Dosage: 100 MG, QD
     Route: 048
  40. NEXIUM [Concomitant]
     Active Substance: ESOMEPRAZOLE MAGNESIUM
     Indication: Gastritis prophylaxis
     Dosage: 10 MG, QD
  41. DOMPERIDONE [Concomitant]
     Active Substance: DOMPERIDONE
     Indication: Prophylaxis of nausea and vomiting
     Dosage: 30 MG, TID
  42. DOMPERIDONE [Concomitant]
     Active Substance: DOMPERIDONE
     Dosage: 30 MG, TID
     Route: 048
  43. SENNOSIDES A AND B [Concomitant]
     Active Substance: SENNOSIDES A AND B
     Indication: Constipation
     Dosage: UNK UNK, AS REQ^D
  44. REBAMIPIDE [Concomitant]
     Active Substance: REBAMIPIDE
     Indication: Gastritis prophylaxis
     Dosage: UNK UNK, AS REQ^D
  45. URSODIOL [Concomitant]
     Active Substance: URSODIOL
     Indication: Prophylaxis
     Dosage: 100 MG, TID
     Dates: start: 20230604
  46. ISOSORBIDE DINITRATE [Concomitant]
     Active Substance: ISOSORBIDE DINITRATE
     Indication: Angina pectoris
     Dosage: 20 MG, BID
  47. ISOSORBIDE DINITRATE [Concomitant]
     Active Substance: ISOSORBIDE DINITRATE
     Dosage: 20 MG, BID
     Route: 048
  48. AMLODIPINE [Concomitant]
     Active Substance: AMLODIPINE BESYLATE
     Indication: Angina pectoris
     Dosage: 2.5 MG, QD
  49. AMLODIPINE [Concomitant]
     Active Substance: AMLODIPINE BESYLATE
     Dosage: 2.5 MG, QD
     Route: 048
  50. HYDROMORPHONE HYDROCHLORIDE [Concomitant]
     Active Substance: HYDROMORPHONE HYDROCHLORIDE
     Indication: Tumour pain
     Dosage: 2 MG, QD
     Dates: start: 20230713
  51. HYDROMORPHONE HYDROCHLORIDE [Concomitant]
     Active Substance: HYDROMORPHONE HYDROCHLORIDE
     Indication: Tumour pain
     Dosage: 1 MG, AS REQ^D

REACTIONS (6)
  - Malignant neoplasm progression [Fatal]
  - Enterocolitis [Recovered/Resolved]
  - Liver abscess [Recovering/Resolving]
  - Metastases to liver [Unknown]
  - Hyponatraemia [Unknown]
  - Blood creatinine increased [Unknown]

NARRATIVE: CASE EVENT DATE: 20230703
